FAERS Safety Report 8512515-5 (Version None)
Quarter: 2012Q3

REPORT INFORMATION
  Report Type: 
  Country: None (occurrence: None)
  Receive Date: 20120716
  Receipt Date: 20120710
  Transmission Date: 20120928
  Serious: Yes (Hospitalization)
  Sender: FDA-Public Use
  Company Number: JP-GLAXOSMITHKLINE-B0813271A

PATIENT
  Age: 52 Year
  Sex: Male

DRUGS (2)
  1. SEROQUEL [Concomitant]
     Route: 048
  2. LAMICTAL [Suspect]
     Indication: PRODUCT USED FOR UNKNOWN INDICATION
     Dosage: 200MG PER DAY
     Route: 048
     Dates: end: 20120705

REACTIONS (1)
  - BRADYKINESIA [None]
